FAERS Safety Report 5110722-5 (Version None)
Quarter: 2006Q3

REPORT INFORMATION
  Report Type: 
  Country: None (occurrence: None)
  Receive Date: 20060919
  Receipt Date: 20060907
  Transmission Date: 20061208
  Serious: Yes (Life-Threatening, Hospitalization)
  Sender: FDA-Public Use
  Company Number: 012467

PATIENT
  Age: 52 Year
  Sex: Female

DRUGS (24)
  1. PRIALT [Suspect]
     Indication: PAIN
     Dosage: SEE IMAGE
     Route: 037
     Dates: start: 20060713, end: 20060720
  2. PRIALT [Suspect]
     Indication: PAIN
     Dosage: SEE IMAGE
     Route: 037
     Dates: start: 20060720, end: 20060731
  3. PRIALT [Suspect]
     Indication: PAIN
     Dosage: SEE IMAGE
     Route: 037
     Dates: start: 20060731, end: 20060804
  4. PRIALT [Suspect]
     Indication: PAIN
     Dosage: SEE IMAGE
     Route: 037
     Dates: start: 20060804, end: 20060815
  5. NORCO (HYDROCODONE BITARTRATE, PARACEMTAMOL) [Concomitant]
  6. FENTANYL [Concomitant]
  7. VANCOMYCIN [Concomitant]
  8. ZOSYN [Concomitant]
  9. LEVAQUIN [Concomitant]
  10. COUMADIN [Concomitant]
  11. PREVACID [Concomitant]
  12. ASPIRN  /00002701/ (ACETYLSALICYLIC ACID) [Concomitant]
  13. INSULIN (INSULIN) [Concomitant]
  14. WELLBUTRIN /000700501/ (BUPROPION) [Concomitant]
  15. CYMBALTA [Concomitant]
  16. LASIX [Concomitant]
  17. FLAGYL (FLUOXETINE HYDROCHLORIDE) [Concomitant]
  18. PROZAC (FLUXOXETINE HYDROCHLORIDE) [Concomitant]
  19. GABAPENTIN [Concomitant]
  20. PHENERGAN /00033001/ (PROMETHAZINE) [Concomitant]
  21. TEMAZEPAM [Concomitant]
  22. GEODON (ZIPRASIDOINE HYDROCHLORIDE) [Concomitant]
  23. ZANAFLEX [Concomitant]
  24. PRILOSEC [Concomitant]

REACTIONS (17)
  - ANAEMIA [None]
  - CONFUSIONAL STATE [None]
  - DELIRIUM [None]
  - DIARRHOEA [None]
  - EFFUSION [None]
  - FALL [None]
  - GAIT DISTURBANCE [None]
  - LETHARGY [None]
  - LIVER FUNCTION TEST ABNORMAL [None]
  - MENTAL STATUS CHANGES [None]
  - MUSCULAR WEAKNESS [None]
  - PNEUMONIA [None]
  - PULMONARY EMBOLISM [None]
  - PYREXIA [None]
  - RENAL FAILURE ACUTE [None]
  - RESPIRATORY FAILURE [None]
  - RHABDOMYOLYSIS [None]
